FAERS Safety Report 24331863 (Version 1)
Quarter: 2024Q3

REPORT INFORMATION
  Report Type: Spontaneous
  Country: US (occurrence: US)
  Receive Date: 20240918
  Receipt Date: 20240918
  Transmission Date: 20241016
  Serious: Yes (Hospitalization, Other)
  Sender: IPCA
  Company Number: US-IPCA LABORATORIES LIMITED-IPC-2024-US-002218

PATIENT

DRUGS (1)
  1. WARFARIN SODIUM [Suspect]
     Active Substance: WARFARIN SODIUM
     Indication: Product used for unknown indication
     Dosage: 4 MILLIGRAM, QD
     Route: 065

REACTIONS (3)
  - Calciphylaxis [Recovered/Resolved]
  - Pain [Recovering/Resolving]
  - Purpura [Recovered/Resolved]
